FAERS Safety Report 26086867 (Version 1)
Quarter: 2025Q4

REPORT INFORMATION
  Report Type: Spontaneous
  Country: CN (occurrence: CN)
  Receive Date: 20251125
  Receipt Date: 20251125
  Transmission Date: 20260118
  Serious: Yes (Hospitalization)
  Sender: BAYER HEALTHCARE PHARMACEUTICALS INC.
  Company Number: CN-MLMSERVICE-20251112-PI710353-00199-1

PATIENT
  Age: 44 Year
  Sex: Female

DRUGS (3)
  1. MIRENA [Suspect]
     Active Substance: LEVONORGESTREL
     Indication: Heavy menstrual bleeding
     Dosage: 20?G/DAY
     Route: 015
  2. MIRENA [Suspect]
     Active Substance: LEVONORGESTREL
     Indication: Dysmenorrhoea
  3. MIRENA [Suspect]
     Active Substance: LEVONORGESTREL
     Indication: Adenomyosis

REACTIONS (3)
  - Uterine cancer [Recovering/Resolving]
  - Endometrial cancer stage II [Recovering/Resolving]
  - Procedural haemorrhage [None]
